FAERS Safety Report 15706924 (Version 1)
Quarter: 2018Q4

REPORT INFORMATION
  Report Type: Spontaneous
  Country: US (occurrence: US)
  Receive Date: 20181210
  Receipt Date: 20181210
  Transmission Date: 20190205
  Serious: Yes (Other)
  Sender: FDA-Public Use
  Company Number: US-GLAXOSMITHKLINE-US2018GSK214734

PATIENT
  Age: 22 Year
  Sex: Female

DRUGS (1)
  1. BENLYSTA [Suspect]
     Active Substance: BELIMUMAB
     Indication: SYSTEMIC LUPUS ERYTHEMATOSUS
     Dosage: UNK

REACTIONS (7)
  - Systemic lupus erythematosus [Unknown]
  - Burning sensation [Unknown]
  - Thermal burn [Unknown]
  - Alopecia [Unknown]
  - Scar [Unknown]
  - Rash macular [Unknown]
  - Drug ineffective [Unknown]
